FAERS Safety Report 8159331-4 (Version None)
Quarter: 2012Q1

REPORT INFORMATION
  Report Type: 
  Country: None (occurrence: None)
  Receive Date: 20120217
  Receipt Date: 20120206
  Transmission Date: 20120608
  Serious: Yes (Hospitalization)
  Sender: FDA-Public Use
  Company Number: 1000027473

PATIENT
  Age: 24 Year
  Sex: Male
  Weight: 63 kg

DRUGS (3)
  1. TEFMETIN (TRIMEBUTINE MALEATE) [Concomitant]
  2. RISPERIDONE [Concomitant]
  3. LEXAPRO [Suspect]
     Indication: OBSESSIVE THOUGHTS
     Dosage: 10 MG (10 MG, 1 IN 1 D), ORAL
     Route: 048
     Dates: start: 20120107, end: 20120110

REACTIONS (6)
  - NAUSEA [None]
  - SUICIDAL IDEATION [None]
  - DEPRESSION SUICIDAL [None]
  - SUICIDE ATTEMPT [None]
  - ACTIVATION SYNDROME [None]
  - PYREXIA [None]
